FAERS Safety Report 22590843 (Version 1)
Quarter: 2023Q2

REPORT INFORMATION
  Report Type: Spontaneous
  Country: US (occurrence: None)
  Receive Date: 20230609
  Receipt Date: 20230609
  Transmission Date: 20230722
  Serious: No
  Sender: FDA-Public Use
  Company Number: None

PATIENT
  Age: 41 Year
  Sex: Female

DRUGS (4)
  1. TALTZ [Suspect]
     Active Substance: IXEKIZUMAB
     Indication: Rheumatoid arthritis
     Dosage: INJECT 80MG (1 PEN) SUBCUTANEOUSLY AT WEEK 0, THEN 80MG (1PEN)  EVERY 4 WEEKS AS DIRECTED
     Route: 058
     Dates: start: 202303
  2. TALTZ [Suspect]
     Active Substance: IXEKIZUMAB
     Indication: Spondyloarthropathy
  3. TALTZ [Suspect]
     Active Substance: IXEKIZUMAB
     Indication: Fibromyalgia
  4. TALTZ [Suspect]
     Active Substance: IXEKIZUMAB
     Indication: Axial spondyloarthritis

REACTIONS (1)
  - Illness [None]
